FAERS Safety Report 10214728 (Version 1)
Quarter: 2014Q2

REPORT INFORMATION
  Report Type: Spontaneous
  Country: US (occurrence: US)
  Receive Date: 20140603
  Receipt Date: 20140603
  Transmission Date: 20141212
  Serious: No
  Sender: FDA-Public Use
  Company Number: US-ENDO PHARMACEUTICALS INC.-SPLN20140033

PATIENT
  Age: 9 Year
  Sex: Female

DRUGS (2)
  1. SUPPRELIN LA [Suspect]
     Indication: PRECOCIOUS PUBERTY
     Route: 058
     Dates: start: 20130119
  2. LUPRON [Concomitant]
     Indication: PRECOCIOUS PUBERTY
     Dosage: UNKNOWN
     Route: 065
     Dates: start: 201210, end: 201301

REACTIONS (6)
  - Growth accelerated [Recovered/Resolved]
  - Puberty [Recovered/Resolved]
  - Implant site bruising [Recovering/Resolving]
  - Implant site scar [Unknown]
  - Device breakage [Recovered/Resolved]
  - Drug ineffective [Recovered/Resolved]
